FAERS Safety Report 13920488 (Version 1)
Quarter: 2017Q3

REPORT INFORMATION
  Report Type: Spontaneous
  Country: US (occurrence: US)
  Receive Date: 20170829
  Receipt Date: 20170829
  Transmission Date: 20171127
  Serious: No
  Sender: FDA-Public Use
  Company Number: None

PATIENT

DRUGS (6)
  1. ACTEMRA [Suspect]
     Active Substance: TOCILIZUMAB
  2. ENBREL [Suspect]
     Active Substance: ETANERCEPT
  3. XELJANZ [Concomitant]
     Active Substance: TOFACITINIB CITRATE
  4. COSENTYX [Suspect]
     Active Substance: SECUKINUMAB
  5. OTEZLA [Concomitant]
     Active Substance: APREMILAST
  6. HUMIRA [Concomitant]
     Active Substance: ADALIMUMAB

REACTIONS (1)
  - Hypersensitivity [None]
